FAERS Safety Report 18295356 (Version 1)
Quarter: 2020Q3

REPORT INFORMATION
  Report Type: Spontaneous
  Country: CN (occurrence: CN)
  Receive Date: 20200922
  Receipt Date: 20200922
  Transmission Date: 20201103
  Serious: Yes (Other)
  Sender: FDA-Public Use
  Company Number: CN-BAUSCH-BL-2020-026806

PATIENT
  Age: 45 Year
  Sex: Male

DRUGS (7)
  1. VINDESINE [Suspect]
     Active Substance: VINDESINE
     Indication: HEPATOSPLENIC T-CELL LYMPHOMA
     Dosage: DAYS 4, 11 (3 CYCLES)
     Route: 065
  2. METHYLPREDNISOLONE. [Suspect]
     Active Substance: METHYLPREDNISOLONE
     Indication: HEPATOSPLENIC T-CELL LYMPHOMA
     Dosage: DAYS 1?3 (3 CYCLES)
     Route: 065
  3. DAUNORUBICIN [Suspect]
     Active Substance: DAUNORUBICIN
     Indication: HEPATOSPLENIC T-CELL LYMPHOMA
     Dosage: DAY 1 (3 CYCLES)
     Route: 065
  4. CYTARABINE. [Suspect]
     Active Substance: CYTARABINE
     Indication: HEPATOSPLENIC T-CELL LYMPHOMA
     Dosage: 2 G/M2  DAYS 2?3 (3 CYCLES)
     Route: 065
  5. DEXAMETHASONE. [Suspect]
     Active Substance: DEXAMETHASONE
     Indication: HEPATOSPLENIC T-CELL LYMPHOMA
     Dosage: ON DAYS 1?4, DAYS 11?14 (3 CYCLES)
     Route: 065
  6. CYCLOPHOSPHAMIDE. [Suspect]
     Active Substance: CYCLOPHOSPHAMIDE
     Indication: HEPATOSPLENIC T-CELL LYMPHOMA
     Dosage: DAYS 1?3 (MESNA RESCUE) (3 CYCLES)
     Route: 065
  7. METHOTREXATE. [Suspect]
     Active Substance: METHOTREXATE
     Indication: HEPATOSPLENIC T-CELL LYMPHOMA
     Dosage: 1 G/M2 DAY 1 (3 CYCLES)
     Route: 065

REACTIONS (2)
  - Disease progression [Recovered/Resolved]
  - Hepatosplenic T-cell lymphoma [Recovered/Resolved]
